FAERS Safety Report 11637188 (Version 3)
Quarter: 2015Q4

REPORT INFORMATION
  Report Type: Report from Study
  Country: US (occurrence: US)
  Receive Date: 20151016
  Receipt Date: 20151118
  Transmission Date: 20160304
  Serious: Yes (Death, Hospitalization)
  Sender: FDA-Public Use
  Company Number: US-JNJFOC-20151010738

PATIENT
  Age: 75 Year
  Sex: Male

DRUGS (9)
  1. METFORMIN [Concomitant]
     Active Substance: METFORMIN HYDROCHLORIDE
  2. HYDROCHLOROTHIAZIDE. [Concomitant]
     Active Substance: HYDROCHLOROTHIAZIDE
  3. ASPIRIN. [Concomitant]
     Active Substance: ASPIRIN
  4. IMBRUVICA [Suspect]
     Active Substance: IBRUTINIB
     Indication: NON-HODGKIN^S LYMPHOMA
     Route: 048
     Dates: start: 20150911, end: 20150923
  5. PRAZOSIN [Concomitant]
     Active Substance: PRAZOSIN
  6. CLONIDINE. [Concomitant]
     Active Substance: CLONIDINE
  7. IMBRUVICA [Suspect]
     Active Substance: IBRUTINIB
     Indication: B-CELL SMALL LYMPHOCYTIC LYMPHOMA
     Route: 048
     Dates: start: 20150911, end: 20150923
  8. RELION/NOVOLIN [Concomitant]
  9. METOPROLOL [Concomitant]
     Active Substance: METOPROLOL

REACTIONS (5)
  - Death [Fatal]
  - Renal tubular necrosis [Unknown]
  - Off label use [Unknown]
  - Hypertension [Unknown]
  - Blood lactate dehydrogenase increased [Unknown]

NARRATIVE: CASE EVENT DATE: 201509
